FAERS Safety Report 9434889 (Version 1)
Quarter: 2013Q3

REPORT INFORMATION
  Report Type: Spontaneous
  Country: SA (occurrence: None)
  Receive Date: 20130730
  Receipt Date: 20130730
  Transmission Date: 20140515
  Serious: Yes (Hospitalization)
  Sender: FDA-Public Use
  Company Number: 149712

PATIENT
  Age: 16 Year
  Sex: Male

DRUGS (1)
  1. CIPROFLOXACIN [Suspect]
     Indication: PNEUMONIA

REACTIONS (5)
  - Posterior reversible encephalopathy syndrome [None]
  - Grand mal convulsion [None]
  - Tachycardia [None]
  - Dyspnoea [None]
  - Hypertension [None]
